FAERS Safety Report 8055745-1 (Version None)
Quarter: 2012Q1

REPORT INFORMATION
  Report Type: 
  Country: None (occurrence: None)
  Receive Date: 20120112
  Receipt Date: 20111229
  Transmission Date: 20120608
  Serious: Yes (Life-Threatening, Other)
  Sender: FDA-Public Use
  Company Number: 11-854

PATIENT
  Age: 45 Year
  Sex: Female
  Weight: 63.5036 kg

DRUGS (4)
  1. D-HIST [Concomitant]
  2. NAPROXEN [Suspect]
     Indication: BACK PAIN
     Dosage: 2 DF; QD; ORAL
     Route: 048
     Dates: start: 20111224
  3. SYNTHROID [Concomitant]
  4. XOPENEX HFA [Concomitant]

REACTIONS (7)
  - DRUG HYPERSENSITIVITY [None]
  - EXPOSURE TO TOXIC AGENT [None]
  - DIARRHOEA [None]
  - TINNITUS [None]
  - EYE SWELLING [None]
  - ASTHMA [None]
  - URTICARIA [None]
